FAERS Safety Report 5362706-X (Version None)
Quarter: 2007Q2

REPORT INFORMATION
  Report Type: 
  Country: None (occurrence: None)
  Receive Date: 20070612
  Receipt Date: 20070529
  Transmission Date: 20071010
  Serious: Yes (Hospitalization)
  Sender: FDA-Public Use
  Company Number: 2007000170

PATIENT
  Age: 64 Year
  Sex: Male

DRUGS (10)
  1. ERLOTINIB(TABLET) (ERLOTINIB HCI) [Suspect]
     Indication: NON-SMALL CELL LUNG CANCER
     Dosage: 150 MG, ORAL
     Route: 048
     Dates: start: 20050808, end: 20070117
  2. OXYCONTIN [Concomitant]
  3. PREDNISOLONE [Concomitant]
  4. ACETAMINOPHEN [Concomitant]
  5. COZAAR [Concomitant]
  6. METOPROLOL TARTRATE [Concomitant]
  7. ENOXAPARIN SODIUM [Concomitant]
  8. IMOVANE (ZOPICLONE) [Concomitant]
  9. OXYCODONE HCL [Concomitant]
  10. ZOFRAN [Concomitant]

REACTIONS (8)
  - BLOOD CREATININE INCREASED [None]
  - LUNG NEOPLASM MALIGNANT [None]
  - MALIGNANT NEOPLASM PROGRESSION [None]
  - MALNUTRITION [None]
  - NAUSEA [None]
  - PAIN [None]
  - PERFORMANCE STATUS DECREASED [None]
  - VOMITING [None]
